FAERS Safety Report 10461049 (Version 2)
Quarter: 2014Q3

REPORT INFORMATION
  Report Type: Spontaneous
  Country: US (occurrence: US)
  Receive Date: 20140918
  Receipt Date: 20140924
  Transmission Date: 20150326
  Serious: Yes (Death, Other)
  Sender: FDA-Public Use
  Company Number: US-009507513-1409USA007272

PATIENT
  Age: 53 Year
  Sex: Male

DRUGS (3)
  1. NORVIR [Concomitant]
     Active Substance: RITONAVIR
     Dosage: UNK
  2. PREZISTA [Concomitant]
     Active Substance: DARUNAVIR ETHANOLATE
     Dosage: UNK
  3. ISENTRESS [Suspect]
     Active Substance: RALTEGRAVIR POTASSIUM
     Indication: HIV INFECTION
     Dosage: 400 MG PER DAY
     Route: 048

REACTIONS (2)
  - Incorrect dose administered [Unknown]
  - Myocardial infarction [Fatal]

NARRATIVE: CASE EVENT DATE: 20140529
